FAERS Safety Report 14178052 (Version 1)
Quarter: 2017Q4

REPORT INFORMATION
  Report Type: Spontaneous
  Country: GB (occurrence: GB)
  Receive Date: 20171110
  Receipt Date: 20171110
  Transmission Date: 20180321
  Serious: Yes (Hospitalization)
  Sender: FDA-Public Use
  Company Number: GB-TEVA-810803ACC

PATIENT
  Age: 71 Year
  Sex: Male
  Weight: 111.8 kg

DRUGS (4)
  1. ALLOPURINOL. [Concomitant]
     Active Substance: ALLOPURINOL
  2. SIMVASTATIN. [Concomitant]
     Active Substance: SIMVASTATIN
  3. DOXAZOSIN MESILATE [Suspect]
     Active Substance: DOXAZOSIN MESYLATE
     Indication: HYPERTENSION
     Dosage: PREVIOUSLY AT 4MG.
     Route: 048
     Dates: end: 20170913
  4. DOXAZOSIN MESILATE [Suspect]
     Active Substance: DOXAZOSIN MESYLATE
     Route: 048

REACTIONS (3)
  - Immune thrombocytopenic purpura [Unknown]
  - Epistaxis [Unknown]
  - Contusion [Unknown]

NARRATIVE: CASE EVENT DATE: 20170912
